FAERS Safety Report 11871545 (Version 1)
Quarter: 2015Q4

REPORT INFORMATION
  Report Type: Spontaneous
  Country: JP (occurrence: JP)
  Receive Date: 20151228
  Receipt Date: 20151228
  Transmission Date: 20160305
  Serious: Yes (Death)
  Sender: FDA-Public Use
  Company Number: JP-BEH-2015056973

PATIENT
  Age: 67 Year
  Sex: Female

DRUGS (7)
  1. RITUXIMAB [Suspect]
     Active Substance: RITUXIMAB
     Dosage: 4 ADMINISTRATIONS
  2. METHYLPREDNISOLONE. [Suspect]
     Active Substance: METHYLPREDNISOLONE
  3. PLASMA EXCHANGE [Suspect]
     Active Substance: ALBUMIN (HUMAN)
     Dosage: EVERY OTHER DAY
  4. ANTIBIOTICS [Concomitant]
     Active Substance: UNSPECIFIED INGREDIENT
  5. INTRAVENOUS IMMUNOGLOBULIN [Suspect]
     Active Substance: HUMAN IMMUNOGLOBULIN G
     Indication: ANTIPHOSPHOLIPID SYNDROME
     Route: 042
  6. METHYLPREDNISOLONE. [Suspect]
     Active Substance: METHYLPREDNISOLONE
  7. METHYLPREDNISOLONE. [Suspect]
     Active Substance: METHYLPREDNISOLONE

REACTIONS (1)
  - Drug ineffective for unapproved indication [Fatal]
